FAERS Safety Report 25563685 (Version 1)
Quarter: 2025Q3

REPORT INFORMATION
  Report Type: Report from Study
  Country: EU (occurrence: EU)
  Receive Date: 20250716
  Receipt Date: 20250716
  Transmission Date: 20251021
  Serious: Yes (Other)
  Sender: AMGEN
  Company Number: EU-ROCHE-10000309701

PATIENT

DRUGS (8)
  1. PANITUMUMAB [Suspect]
     Active Substance: PANITUMUMAB
     Indication: Neoplasm malignant
     Dosage: ON 29-OCT-2024, THE PATIENT RECEIVED THE MOST RECENT DOSE OF STUDY DRUG PRIOR TO AE AND SAE.DOSE OF
     Route: 040
     Dates: start: 20241015
  2. PANITUMUMAB [Suspect]
     Active Substance: PANITUMUMAB
     Indication: Neoplasm
  3. FLUOROURACIL [Suspect]
     Active Substance: FLUOROURACIL
     Indication: Neoplasm malignant
     Route: 040
     Dates: start: 20241015
  4. FLUOROURACIL [Suspect]
     Active Substance: FLUOROURACIL
     Indication: Neoplasm
  5. OXALIPLATIN [Suspect]
     Active Substance: OXALIPLATIN
     Indication: Neoplasm malignant
     Dosage: DATE OF MOST RECENT DOSE OF CANCER TREATMENT PRIOR TO AE/SAE ONSET 29-OCT-2024
     Route: 040
     Dates: start: 20241015
  6. OXALIPLATIN [Suspect]
     Active Substance: OXALIPLATIN
     Indication: Neoplasm
  7. LEUCOVORIN CALCIUM [Suspect]
     Active Substance: LEUCOVORIN CALCIUM
     Indication: Neoplasm malignant
     Dosage: DATE OF MOST RECENT DOSE OF CANCER TREATMENT PRIOR TO AE/SAE ONSET 29-OCT-2024
     Route: 040
     Dates: start: 20241015
  8. LEUCOVORIN CALCIUM [Suspect]
     Active Substance: LEUCOVORIN CALCIUM
     Indication: Neoplasm

REACTIONS (2)
  - Polyneuropathy [Recovered/Resolved]
  - Diarrhoea [Recovered/Resolved]

NARRATIVE: CASE EVENT DATE: 20241113
